FAERS Safety Report 9092611 (Version 2)
Quarter: 2013Q4

REPORT INFORMATION
  Report Type: Spontaneous
  Country: US (occurrence: US)
  Receive Date: 20130201
  Receipt Date: 20131101
  Transmission Date: 20140711
  Serious: Yes (Hospitalization, Other)
  Sender: FDA-Public Use
  Company Number: US-009507513-1301USA014066

PATIENT
  Sex: Female
  Weight: 51.7 kg

DRUGS (15)
  1. FOSAMAX [Suspect]
     Indication: OSTEOPOROSIS
     Dosage: UNK
     Route: 048
     Dates: start: 20021218, end: 20060718
  2. FOSAMAX [Suspect]
     Indication: OSTEOPENIA
  3. FOSAMAX PLUS D [Suspect]
     Indication: OSTEOPENIA
     Dosage: 70MG-2800UNITS
     Route: 048
     Dates: start: 20060718, end: 20090415
  4. FOSAMAX PLUS D [Suspect]
     Indication: OSTEOPOROSIS
  5. HYDROCHLOROTHIAZIDE [Concomitant]
     Indication: OSTEOPENIA
     Dosage: 12.5 MG, QD
     Route: 048
     Dates: start: 20080214
  6. HYDROCHLOROTHIAZIDE [Concomitant]
     Indication: OSTEOPOROSIS
  7. HYDROCHLOROTHIAZIDE [Concomitant]
     Indication: HYPERCALCIURIA
  8. CALCIUM CITRATE [Concomitant]
     Indication: OSTEOPENIA
     Dosage: 630-1200 MG, QD
  9. CALCIUM CITRATE [Concomitant]
     Indication: OSTEOPOROSIS
  10. CHOLECALCIFEROL [Concomitant]
     Indication: OSTEOPENIA
     Dosage: 1000 MG, QD
  11. CHOLECALCIFEROL [Concomitant]
     Indication: OSTEOPOROSIS
  12. CALCITONIN [Concomitant]
     Indication: OSTEOPENIA
     Dosage: UNK
     Route: 045
  13. CALCITONIN [Concomitant]
     Indication: OSTEOPOROSIS
  14. CALCIUM (UNSPECIFIED) [Concomitant]
     Indication: OSTEOPOROSIS
  15. VITAMIN D (UNSPECIFIED) [Concomitant]
     Indication: OSTEOPOROSIS

REACTIONS (16)
  - Intramedullary rod insertion [Unknown]
  - Bladder neck suspension [Unknown]
  - Femur fracture [Unknown]
  - Low turnover osteopathy [Unknown]
  - Depression [Unknown]
  - Anxiety [Unknown]
  - Fall [Unknown]
  - Angiopathy [Unknown]
  - Haematocrit decreased [Unknown]
  - Large intestine polyp [Unknown]
  - Large intestinal polypectomy [Unknown]
  - Nephrolithiasis [Unknown]
  - Urinary incontinence [Unknown]
  - Hypercalcaemia [Unknown]
  - Migraine [Unknown]
  - Upper respiratory tract infection [Unknown]
